FAERS Safety Report 7309712-3 (Version None)
Quarter: 2011Q1

REPORT INFORMATION
  Report Type: 
  Country: None (occurrence: None)
  Receive Date: 20110224
  Receipt Date: 20110216
  Transmission Date: 20110831
  Serious: Yes (Hospitalization)
  Sender: FDA-Public Use
  Company Number: US-BIOGENIDEC-2011BI006020

PATIENT
  Age: 51 Year
  Sex: Female
  Weight: 90 kg

DRUGS (3)
  1. TYSABRI [Concomitant]
     Indication: MULTIPLE SCLEROSIS
     Route: 042
  2. AVONEX [Suspect]
     Indication: MULTIPLE SCLEROSIS
     Route: 030
     Dates: start: 20091006
  3. AVONEX [Suspect]
     Route: 030
     Dates: start: 20081001, end: 20090401

REACTIONS (1)
  - MYOCARDIAL INFARCTION [None]
